FAERS Safety Report 4706327-8 (Version None)
Quarter: 2005Q2

REPORT INFORMATION
  Report Type: 
  Country: None (occurrence: None)
  Receive Date: 20050629
  Receipt Date: 20050414
  Transmission Date: 20051028
  Serious: No
  Sender: FDA-Public Use
  Company Number: 05P-163-0297431-00

PATIENT
  Age: 64 Year
  Sex: Female
  Weight: 65.7716 kg

DRUGS (13)
  1. HUMIRA [Suspect]
     Indication: RHEUMATOID ARTHRITIS
     Dosage: 40 MG, 1 IN 2 WK, SUBCUTANEOUS
     Route: 058
     Dates: start: 20040601
  2. METHOTREXATE [Concomitant]
  3. HYDROXYCHLOROQUINE PHOSPHATE [Concomitant]
  4. FOLIC ACID [Concomitant]
  5. ESTROGENS CONJUGATED [Concomitant]
  6. LANSOPRAZOLE [Concomitant]
  7. MISOPROSTOL [Concomitant]
  8. IRBESARTAN [Concomitant]
  9. HYDROCHLOROTHIAZIDE [Concomitant]
  10. METOPROLOL SUCCINATE [Concomitant]
  11. DILTIAZEM HYDROCHLORIDE [Concomitant]
  12. ALENDRONATE SODIUM [Concomitant]
  13. SULFASALAZINE [Concomitant]

REACTIONS (1)
  - RASH [None]
